FAERS Safety Report 24661343 (Version 1)
Quarter: 2024Q4

REPORT INFORMATION
  Report Type: Report from Study
  Country: US (occurrence: US)
  Receive Date: 20241125
  Receipt Date: 20241125
  Transmission Date: 20250115
  Serious: Yes (Hospitalization, Other)
  Sender: OTSUKA
  Company Number: US-OTSUKA-2024_027302

PATIENT
  Age: 43 Year
  Sex: Female

DRUGS (2)
  1. TOLVAPTAN [Suspect]
     Active Substance: TOLVAPTAN
     Indication: Congenital cystic kidney disease
     Dosage: 60 MG, QD (QAM (EVERY MORNING))
     Route: 048
  2. TOLVAPTAN [Suspect]
     Active Substance: TOLVAPTAN
     Dosage: 30 MG, QD (8 HOURS LATER)
     Route: 048

REACTIONS (4)
  - Non-Hodgkin^s lymphoma [Unknown]
  - Mass excision [Unknown]
  - Plastic surgery [Unknown]
  - Nocturia [Unknown]

NARRATIVE: CASE EVENT DATE: 20241104
